FAERS Safety Report 4805836-0 (Version None)
Quarter: 2005Q4

REPORT INFORMATION
  Report Type: 
  Country: None (occurrence: None)
  Receive Date: 20051021
  Receipt Date: 20051006
  Transmission Date: 20060501
  Serious: Yes (Hospitalization)
  Sender: FDA-Public Use
  Company Number: JP-JNJFOC-20051003658

PATIENT
  Age: 59 Year
  Sex: Female

DRUGS (4)
  1. PEPCID AC [Suspect]
     Route: 048
  2. PEPCID AC [Suspect]
     Route: 048
  3. ZANTAC [Suspect]
     Route: 048
  4. PEPCID [Suspect]
     Route: 048

REACTIONS (2)
  - ATRIOVENTRICULAR BLOCK COMPLETE [None]
  - DRUG INEFFECTIVE [None]
